FAERS Safety Report 19847817 (Version 1)
Quarter: 2021Q3

REPORT INFORMATION
  Report Type: Spontaneous
  Country: US (occurrence: US)
  Receive Date: 20210917
  Receipt Date: 20210917
  Transmission Date: 20211014
  Serious: Yes (Other)
  Sender: FDA-Public Use
  Company Number: US-TEVA-2021-US-1952455

PATIENT
  Age: 32 Year
  Sex: Female

DRUGS (1)
  1. VESTURA [Suspect]
     Active Substance: DROSPIRENONE\ETHINYL ESTRADIOL
     Indication: CONTRACEPTION
     Dosage: FORM STRENGTH AND DOSE: UNKNOWN
     Route: 065
     Dates: start: 202108, end: 20210905

REACTIONS (3)
  - Tenderness [Not Recovered/Not Resolved]
  - Chloasma [Unknown]
  - Salpingitis [Not Recovered/Not Resolved]

NARRATIVE: CASE EVENT DATE: 202108
